FAERS Safety Report 18437802 (Version 1)
Quarter: 2020Q4

REPORT INFORMATION
  Report Type: Spontaneous
  Country: RU (occurrence: RU)
  Receive Date: 20201028
  Receipt Date: 20201028
  Transmission Date: 20210114
  Serious: Yes (Hospitalization, Other)
  Sender: FDA-Public Use
  Company Number: RU-GLAXOSMITHKLINE-RU2020GSK214554

PATIENT
  Sex: Male
  Weight: 2.23 kg

DRUGS (1)
  1. NICOTINE. [Suspect]
     Active Substance: NICOTINE
     Indication: PRODUCT USED FOR UNKNOWN INDICATION
     Dosage: UNK
     Route: 064

REACTIONS (13)
  - Hypotonia [Unknown]
  - Cardiac murmur [Unknown]
  - Foetal exposure during pregnancy [Unknown]
  - Cyanosis [Unknown]
  - Skin mass [Unknown]
  - Respiratory distress [Unknown]
  - Premature baby [Unknown]
  - Pulmonary hypertension [Unknown]
  - Tuberous sclerosis complex [Unknown]
  - Supraventricular extrasystoles [Unknown]
  - Rhabdomyoma [Unknown]
  - Use of accessory respiratory muscles [Unknown]
  - Electrocardiogram QT prolonged [Unknown]
